FAERS Safety Report 4511834-7 (Version None)
Quarter: 2004Q4

REPORT INFORMATION
  Report Type: 
  Country: None (occurrence: None)
  Receive Date: 20041129
  Receipt Date: 20041111
  Transmission Date: 20050328
  Serious: Yes (Disabling)
  Sender: FDA-Public Use
  Company Number: US-MERCK-0411USA02134

PATIENT
  Age: 85 Year
  Sex: Female

DRUGS (3)
  1. TRUSOPT [Suspect]
     Indication: GLAUCOMA
     Route: 047
     Dates: start: 20000101
  2. TRAVATAN [Concomitant]
     Route: 065
  3. TIMOPTIC IN OCUDOSE [Concomitant]
     Route: 047

REACTIONS (3)
  - KERATITIS [None]
  - PHARMACEUTICAL PRODUCT COMPLAINT [None]
  - VISUAL ACUITY REDUCED [None]
